FAERS Safety Report 4660773-X (Version None)
Quarter: 2005Q2

REPORT INFORMATION
  Report Type: 
  Country: None (occurrence: None)
  Receive Date: 20050511
  Receipt Date: 20050428
  Transmission Date: 20051028
  Serious: Yes (Life-Threatening, Hospitalization)
  Sender: FDA-Public Use
  Company Number: HQWYE491603MAY05

PATIENT
  Age: 38 Year
  Sex: Male
  Weight: 87.3 kg

DRUGS (10)
  1. RAPAMUNE [Suspect]
     Indication: PROPHYLAXIS AGAINST TRANSPLANT REJECTION
     Dosage: 5 MG 1X PER 1 DAY, ORAL
     Route: 048
     Dates: start: 20041230
  2. TACROLIMUS (TACROLIMUS) [Concomitant]
  3. CORTICOSTEROID NOS (CORTICOSTEROID NOS) [Concomitant]
  4. ATENOLOL [Concomitant]
  5. ATORVASTATIN CALCIUM [Concomitant]
  6. BACTRIM [Concomitant]
  7. GANCICLOVIR SODIUM [Concomitant]
  8. ADALAT CC [Concomitant]
  9. VICODIN [Concomitant]
  10. ZOLPIDEM TARTRATE [Concomitant]

REACTIONS (4)
  - DRUG INEFFECTIVE [None]
  - DRUG TOXICITY [None]
  - GLOMERULONEPHRITIS PROLIFERATIVE [None]
  - KIDNEY TRANSPLANT REJECTION [None]
